FAERS Safety Report 5506176-7 (Version None)
Quarter: 2007Q4

REPORT INFORMATION
  Report Type: 
  Country: None (occurrence: None)
  Receive Date: 20071105
  Receipt Date: 20071030
  Transmission Date: 20080405
  Serious: Yes (Other)
  Sender: FDA-Public Use
  Company Number: PHEH2007US14220

PATIENT
  Sex: Female

DRUGS (1)
  1. FEMARA [Suspect]
     Dates: start: 20060801, end: 20070401

REACTIONS (4)
  - MUSCULOSKELETAL STIFFNESS [None]
  - PAIN IN EXTREMITY [None]
  - TENDONITIS [None]
  - TRIGGER FINGER [None]
